FAERS Safety Report 23821435 (Version 1)
Quarter: 2024Q2

REPORT INFORMATION
  Report Type: Spontaneous
  Country: US (occurrence: None)
  Receive Date: 20240504
  Receipt Date: 20240504
  Transmission Date: 20240716
  Serious: Yes (Other)
  Sender: FDA-Public Use
  Company Number: None

PATIENT
  Age: 81 Year
  Sex: Female
  Weight: 43.65 kg

DRUGS (1)
  1. RIVASTIGMINE TARTRATE [Suspect]
     Active Substance: RIVASTIGMINE TARTRATE
     Indication: Cognitive disorder
     Dosage: FREQUENCY : TWICE A DAY;?
     Route: 048
     Dates: start: 20240501

REACTIONS (4)
  - Dehydration [None]
  - Nausea [None]
  - Vomiting [None]
  - Diarrhoea [None]

NARRATIVE: CASE EVENT DATE: 20240501
